FAERS Safety Report 6146521-5 (Version None)
Quarter: 2009Q2

REPORT INFORMATION
  Report Type: 
  Country: None (occurrence: None)
  Receive Date: 20090407
  Receipt Date: 20090407
  Transmission Date: 20091009
  Serious: Yes (Other)
  Sender: FDA-Public Use
  Company Number: US-PFIZER INC-2007049666

PATIENT
  Sex: Female
  Weight: 63.636 kg

DRUGS (3)
  1. CHANTIX [Suspect]
     Dosage: 1 MG, 2X/DAY
     Route: 048
     Dates: start: 20070605
  2. OTHER HYPNOTICS AND SEDATIVES [Concomitant]
  3. VITAMINS [Concomitant]

REACTIONS (4)
  - ANGER [None]
  - EMOTIONAL DISORDER [None]
  - MOOD ALTERED [None]
  - TOBACCO USER [None]
